FAERS Safety Report 17353329 (Version 1)
Quarter: 2020Q1

REPORT INFORMATION
  Report Type: Spontaneous
  Country: US (occurrence: US)
  Receive Date: 20200115
  Receipt Date: 20200115
  Transmission Date: 20200409
  Serious: Yes (Life-Threatening)
  Sender: FDA-Public Use
  Company Number: None

PATIENT
  Age: 53 Year
  Sex: Male
  Weight: 92.53 kg

DRUGS (1)
  1. PENICILLIN (PENICILLIN V K 500MG TAB) [Suspect]
     Active Substance: PENICILLIN V POTASSIUM
     Indication: UPPER RESPIRATORY TRACT INFECTION
     Dates: start: 20150721

REACTIONS (1)
  - Angioedema [None]

NARRATIVE: CASE EVENT DATE: 20150715
